FAERS Safety Report 9422477 (Version 1)
Quarter: 2013Q3

REPORT INFORMATION
  Report Type: Other
  Country: GB (occurrence: GB)
  Receive Date: 20130726
  Receipt Date: 20130726
  Transmission Date: 20140515
  Serious: Yes (Hospitalization, Other)
  Sender: FDA-Public Use
  Company Number: GB-TARO PHARMACEUTICALS U.S.A., INC-2013SUN01076

PATIENT
  Sex: Female

DRUGS (2)
  1. WARFARIN [Suspect]
     Indication: CARDIAC FAILURE CONGESTIVE
     Route: 065
  2. OCTAPLEX [Suspect]
     Indication: HYPERCOAGULATION
     Dosage: 500 IU, QID
     Route: 042
     Dates: start: 20130628, end: 20130628

REACTIONS (6)
  - Pleural effusion [Unknown]
  - Dyspnoea [Unknown]
  - Infusion site extravasation [Unknown]
  - Infusion site necrosis [Unknown]
  - Injection site erythema [Unknown]
  - International normalised ratio increased [Unknown]
